FAERS Safety Report 7156764-X (Version None)
Quarter: 2010Q4

REPORT INFORMATION
  Report Type: 
  Country: None (occurrence: None)
  Receive Date: 20101214
  Receipt Date: 20101207
  Transmission Date: 20110411
  Serious: Yes (Death)
  Sender: FDA-Public Use
  Company Number: US-AMGEN-USASP2010008131

PATIENT

DRUGS (1)
  1. ENBREL [Suspect]
     Dates: end: 20101101

REACTIONS (1)
  - DEATH [None]
